FAERS Safety Report 24203714 (Version 1)
Quarter: 2024Q3

REPORT INFORMATION
  Report Type: Report from Study
  Country: TN (occurrence: TN)
  Receive Date: 20240813
  Receipt Date: 20240813
  Transmission Date: 20241016
  Serious: Yes (Hospitalization, Other)
  Sender: ABBVIE
  Company Number: TN-ABBVIE-5875012

PATIENT
  Sex: Female

DRUGS (3)
  1. HUMIRA [Suspect]
     Active Substance: ADALIMUMAB
     Indication: Crohn^s disease
     Dosage: FORM STRENGTH:40 MILLIGRAM
     Route: 058
     Dates: start: 20200301, end: 202005
  2. IRON [Concomitant]
     Active Substance: IRON
     Indication: Anaemia
     Dosage: 2 TABLET,?START DATE TEXT: 3-4 YEARS AGO
     Route: 048
     Dates: start: 2020
  3. Sipro [Concomitant]
     Indication: Abscess
     Dosage: 2 TABLET
     Route: 048
     Dates: start: 2022

REACTIONS (2)
  - Anal abscess [Recovering/Resolving]
  - Anal fistula [Recovering/Resolving]

NARRATIVE: CASE EVENT DATE: 20220101
